FAERS Safety Report 23537375 (Version 1)
Quarter: 2024Q1

REPORT INFORMATION
  Report Type: Spontaneous
  Country: US (occurrence: US)
  Receive Date: 20240219
  Receipt Date: 20240219
  Transmission Date: 20240410
  Serious: No
  Sender: FDA-Public Use
  Company Number: US-AMGEN-USASP2024031242

PATIENT
  Age: 40 Year
  Sex: Female

DRUGS (17)
  1. OTEZLA [Suspect]
     Active Substance: APREMILAST
     Indication: Rheumatoid arthritis
     Dosage: 30 MILLIGRAM, QD
     Route: 048
     Dates: start: 20211222
  2. OTEZLA [Suspect]
     Active Substance: APREMILAST
     Indication: Off label use
  3. ALBUTEROL [Concomitant]
     Active Substance: ALBUTEROL
  4. ABILIFY [Concomitant]
     Active Substance: ARIPIPRAZOLE
  5. BUPROPION [Concomitant]
     Active Substance: BUPROPION
  6. FLOVENT [Concomitant]
     Active Substance: FLUTICASONE PROPIONATE
  7. FLUCONAZOLE [Concomitant]
     Active Substance: FLUCONAZOLE
  8. FLUTICASONE [Concomitant]
     Active Substance: FLUTICASONE
  9. FOLIC ACID [Concomitant]
     Active Substance: FOLIC ACID
  10. LAMICTAL [Concomitant]
     Active Substance: LAMOTRIGINE
  11. LINZESS [Concomitant]
     Active Substance: LINACLOTIDE
  12. LOSARTAN [Concomitant]
     Active Substance: LOSARTAN
  13. OMEPRAZOLE [Concomitant]
     Active Substance: OMEPRAZOLE
  14. TOPIRAMATE [Concomitant]
     Active Substance: TOPIRAMATE
  15. TRAMADOL [Concomitant]
     Active Substance: TRAMADOL\TRAMADOL HYDROCHLORIDE
  16. VITAMIN D [Concomitant]
     Active Substance: VITAMIN D NOS
  17. ZOLPIDEM [Concomitant]
     Active Substance: ZOLPIDEM TARTRATE

REACTIONS (2)
  - Off label use [Unknown]
  - Intentional dose omission [Unknown]

NARRATIVE: CASE EVENT DATE: 20211222
